FAERS Safety Report 8340535-2 (Version None)
Quarter: 2012Q2

REPORT INFORMATION
  Report Type: 
  Country: None (occurrence: None)
  Receive Date: 20120507
  Receipt Date: 20090813
  Transmission Date: 20120825
  Serious: Yes (Other)
  Sender: FDA-Public Use
  Company Number: US-TEVA-2009009601

PATIENT
  Sex: Male
  Weight: 99.88 kg

DRUGS (2)
  1. TREANDA [Suspect]
     Indication: NON-HODGKIN'S LYMPHOMA
     Route: 042
     Dates: start: 20090601
  2. RITUXIMAB [Concomitant]
     Indication: NON-HODGKIN'S LYMPHOMA
     Dates: start: 20090601

REACTIONS (4)
  - PLATELET COUNT DECREASED [None]
  - HEAT RASH [None]
  - PYREXIA [None]
  - BLOOD BILIRUBIN INCREASED [None]
